FAERS Safety Report 5497068-0 (Version None)
Quarter: 2007Q4

REPORT INFORMATION
  Report Type: 
  Country: None (occurrence: None)
  Receive Date: 20071025
  Receipt Date: 20071015
  Transmission Date: 20080405
  Serious: Yes (Hospitalization)
  Sender: FDA-Public Use
  Company Number: IT-ROCHE-522812

PATIENT
  Age: 70 Year
  Sex: Male

DRUGS (8)
  1. ROCEPHIN [Suspect]
     Indication: ANTIBIOTIC PROPHYLAXIS
     Dosage: FORM REPORTED AS VIAL.
     Route: 042
     Dates: start: 20070926, end: 20070928
  2. DINTOINA [Suspect]
     Route: 065
     Dates: start: 20070926, end: 20070928
  3. GARDENALE [Suspect]
     Route: 065
     Dates: start: 20070925, end: 20070925
  4. GARDENALE [Suspect]
     Route: 065
     Dates: start: 20070928, end: 20070930
  5. COTAREG [Concomitant]
  6. LANSOX [Concomitant]
  7. FRAXIPARINA [Concomitant]
     Dosage: FORM: VIAL STRENGTH: 3800 IU/0.4 ML
  8. TACHIDOL [Concomitant]

REACTIONS (1)
  - ERYTHEMA MULTIFORME [None]
